FAERS Safety Report 6394200-1 (Version None)
Quarter: 2009Q4

REPORT INFORMATION
  Report Type: 
  Country: None (occurrence: None)
  Receive Date: 20091008
  Receipt Date: 20090925
  Transmission Date: 20100525
  Serious: Yes (Other)
  Sender: FDA-Public Use
  Company Number: AT-GILEAD-2009-0024479

PATIENT
  Sex: Female

DRUGS (12)
  1. VIREAD [Suspect]
     Dates: start: 20020201, end: 20050401
  2. VIREAD [Suspect]
     Dates: start: 20061201, end: 20070101
  3. ETRAVIRINE [Concomitant]
     Dates: start: 20080101
  4. DARUNAVIR [Concomitant]
     Dates: start: 20080101
  5. RALTEGRAVIR [Concomitant]
     Dates: start: 20080101
  6. MARAVIROC [Concomitant]
     Dates: start: 20090701
  7. LAMIVUDINE [Concomitant]
     Dates: start: 19960401, end: 20080101
  8. RITONAVIR [Concomitant]
     Dates: start: 19960401, end: 19960601
  9. VIDEX [Concomitant]
     Dates: start: 20000501, end: 20080101
  10. LOPINAVIR AND RITONAVIR [Concomitant]
     Dates: start: 20010401, end: 20080101
  11. ENFUVIRTIDE [Concomitant]
     Dates: start: 20050401, end: 20061201
  12. ENFUVIRTIDE [Concomitant]
     Dates: start: 20070101, end: 20080101

REACTIONS (3)
  - FANCONI SYNDROME ACQUIRED [None]
  - GLOMERULAR FILTRATION RATE DECREASED [None]
  - MULTIPLE FRACTURES [None]
